FAERS Safety Report 8548317-3 (Version None)
Quarter: 2012Q3

REPORT INFORMATION
  Report Type: 
  Country: None (occurrence: None)
  Receive Date: 20120717
  Receipt Date: 20120705
  Transmission Date: 20120928
  Serious: Yes (Life-Threatening, Hospitalization, Other)
  Sender: FDA-Public Use
  Company Number: DSJ-2012-12302

PATIENT
  Age: 84 Year
  Sex: Female
  Weight: 36.5 kg

DRUGS (15)
  1. MOBIC [Concomitant]
  2. ALFAROL (ALFACALCIDOL) [Concomitant]
  3. DIFLUCAN [Suspect]
     Indication: PNEUMONIA CRYPTOCOCCAL
     Dosage: 400 MG (200 MG, 2 IN 1 D), PER ORAL; 200 MG, PER ORAL
     Route: 048
     Dates: start: 20120608
  4. DIFLUCAN [Suspect]
     Indication: PNEUMONIA CRYPTOCOCCAL
     Dosage: 400 MG (200 MG, 2 IN 1 D), PER ORAL; 200 MG, PER ORAL
     Route: 048
     Dates: start: 20120403, end: 20120529
  5. DIFLUCAN [Suspect]
     Indication: PNEUMONIA CRYPTOCOCCAL
     Dosage: 400 MG (200 MG, 2 IN 1 D), PER ORAL; 200 MG, PER ORAL
     Route: 048
     Dates: start: 20120606, end: 20120607
  6. SELBEX (TEPRENONE) [Concomitant]
  7. OLMESARTAN MEDOXOMIL [Suspect]
     Indication: HYPERTENSION
     Dosage: 20 MG (20 MG, 1 IN 1 D), PER ORAL
     Route: 048
     Dates: end: 20120424
  8. FOLIC ACID [Concomitant]
  9. ACTONEL [Concomitant]
  10. LAC B (LACTOBACILLUS BIFIDUS, LYOPHILIZED) [Concomitant]
  11. RHEUMATREX [Concomitant]
  12. RABEPRAZOLE SODIUM [Concomitant]
  13. DEPAS (ETIZOLAM) [Concomitant]
  14. PROGRAF [Concomitant]
  15. GANATON (ITOPRIDE HYDROCHLORIDE) [Concomitant]

REACTIONS (3)
  - BLOOD PRESSURE DECREASED [None]
  - RENAL DISORDER [None]
  - HYPERKALAEMIA [None]
